FAERS Safety Report 14669731 (Version 1)
Quarter: 2018Q1

REPORT INFORMATION
  Report Type: Spontaneous
  Country: CA (occurrence: CA)
  Receive Date: 20180322
  Receipt Date: 20180322
  Transmission Date: 20180509
  Serious: Yes (Disabling)
  Sender: FDA-Public Use
  Company Number: CA-BAYER-2018-051692

PATIENT
  Age: 47 Year
  Sex: Female
  Weight: 148 kg

DRUGS (3)
  1. QUETIAPINE. [Concomitant]
     Active Substance: QUETIAPINE
  2. MIRENA [Suspect]
     Active Substance: LEVONORGESTREL
     Indication: CONTRACEPTION
  3. MIRENA [Suspect]
     Active Substance: LEVONORGESTREL
     Indication: CONTRACEPTION
     Dosage: 20 MCG/24HR, CONT
     Route: 015

REACTIONS (21)
  - Exercise tolerance decreased [Recovering/Resolving]
  - Food allergy [Recovering/Resolving]
  - Major depression [Recovering/Resolving]
  - Amnesia [Recovering/Resolving]
  - Anxiety disorder [Recovering/Resolving]
  - Mental impairment [Recovering/Resolving]
  - Alopecia [Recovering/Resolving]
  - Breast pain [Recovering/Resolving]
  - Mood swings [Recovering/Resolving]
  - Disturbance in attention [Recovering/Resolving]
  - Paralysis [Recovering/Resolving]
  - Migraine [Recovering/Resolving]
  - Pain [Recovering/Resolving]
  - Anxiety [Recovering/Resolving]
  - Food intolerance [Recovering/Resolving]
  - Lethargy [Recovering/Resolving]
  - Abdominal pain [Recovering/Resolving]
  - Apathy [Recovering/Resolving]
  - Condition aggravated [Recovering/Resolving]
  - Fatigue [Recovering/Resolving]
  - Mental fatigue [Recovering/Resolving]
